FAERS Safety Report 12331169 (Version 1)
Quarter: 2016Q2

REPORT INFORMATION
  Report Type: Spontaneous
  Country: RS (occurrence: RS)
  Receive Date: 20160504
  Receipt Date: 20160504
  Transmission Date: 20160815
  Serious: Yes (Other)
  Sender: FDA-Public Use
  Company Number: RS-009507513-1604SRB015668

PATIENT
  Age: 56 Year
  Sex: Female
  Weight: 51 kg

DRUGS (4)
  1. THALIDOMIDE [Concomitant]
     Active Substance: THALIDOMIDE
     Dosage: UNK
  2. MAPROTILINE [Concomitant]
     Active Substance: MAPROTILINE
     Dosage: UNK
     Dates: start: 2013
  3. MAPROTILINE [Concomitant]
     Active Substance: MAPROTILINE
     Indication: DEPRESSION
     Dosage: UNK
     Dates: end: 201304
  4. REMERON [Suspect]
     Active Substance: MIRTAZAPINE
     Indication: ANOREXIA NERVOSA
     Dosage: 30 MG, QD
     Route: 048
     Dates: start: 201304

REACTIONS (1)
  - Plasma cell myeloma [Recovering/Resolving]

NARRATIVE: CASE EVENT DATE: 2013
